FAERS Safety Report 8960120 (Version 2)
Quarter: 2013Q1

REPORT INFORMATION
  Report Type: Report from Study
  Country: HU (occurrence: HU)
  Receive Date: 20121211
  Receipt Date: 20130123
  Transmission Date: 20140127
  Serious: Yes (Other)
  Sender: FDA-Public Use
  Company Number: HU-GLAXOSMITHKLINE-B0850458A

PATIENT
  Age: 53 Year
  Sex: Female

DRUGS (5)
  1. SERETIDE [Suspect]
     Indication: CHRONIC OBSTRUCTIVE PULMONARY DISEASE
     Route: 065
     Dates: start: 20121002
  2. VENTOLIN [Concomitant]
     Route: 065
     Dates: start: 20121002, end: 20121018
  3. UNKNOWN DRUG [Concomitant]
     Dates: start: 2002
  4. MYDETON [Concomitant]
     Dosage: 150MG TWICE PER DAY
     Route: 065
     Dates: start: 2002
  5. UNKNOWN DRUG [Concomitant]
     Route: 065

REACTIONS (6)
  - Angina pectoris [Recovering/Resolving]
  - Heart rate increased [Recovering/Resolving]
  - Fatigue [Not Recovered/Not Resolved]
  - Mood altered [Not Recovered/Not Resolved]
  - Middle insomnia [Not Recovered/Not Resolved]
  - Weight decreased [Recovered/Resolved]
